FAERS Safety Report 6504890-8 (Version None)
Quarter: 2009Q4

REPORT INFORMATION
  Report Type: 
  Country: None (occurrence: None)
  Receive Date: 20091216
  Receipt Date: 20091202
  Transmission Date: 20100525
  Serious: Yes (Other)
  Sender: FDA-Public Use
  Company Number: 2009AL005454

PATIENT
  Age: 54 Year
  Sex: Male
  Weight: 50 kg

DRUGS (10)
  1. ACYCLOVIR [Suspect]
     Indication: HERPES ZOSTER
     Dosage: 800 MG; Q5H; PO
     Route: 048
     Dates: start: 20051015, end: 20061015
  2. NEORECORMON [Concomitant]
  3. XENICAL [Concomitant]
  4. ENALAPRIL [Concomitant]
  5. CALCICHEW [Concomitant]
  6. ALFACALCIDOL [Concomitant]
  7. AMLODIPINE [Concomitant]
  8. ATENOLOL [Concomitant]
  9. GABAPENTIN [Concomitant]
  10. NEORECORMON [Concomitant]

REACTIONS (4)
  - APLASIA PURE RED CELL [None]
  - ARTHRALGIA [None]
  - DRUG TOXICITY [None]
  - HERPES ZOSTER [None]
